FAERS Safety Report 19491181 (Version 1)
Quarter: 2021Q3

REPORT INFORMATION
  Report Type: Report from Study
  Country: NO (occurrence: NO)
  Receive Date: 20210705
  Receipt Date: 20210705
  Transmission Date: 20211014
  Serious: Yes (Hospitalization)
  Sender: FDA-Public Use
  Company Number: NO-ROCHE-2777401

PATIENT
  Age: 72 Year
  Sex: Male

DRUGS (3)
  1. GENTAMYCIN [Concomitant]
     Active Substance: GENTAMICIN
     Route: 042
  2. TOCILIZUMAB. [Suspect]
     Active Substance: TOCILIZUMAB
     Indication: MYOCARDIAL INFARCTION
     Route: 042
     Dates: start: 20191022
  3. CLOXACILLIN [Concomitant]
     Active Substance: CLOXACILLIN
     Route: 042

REACTIONS (1)
  - Acute myocardial infarction [Recovered/Resolved]

NARRATIVE: CASE EVENT DATE: 20191025
